FAERS Safety Report 6743531-1 (Version None)
Quarter: 2010Q2

REPORT INFORMATION
  Report Type: 
  Country: None (occurrence: None)
  Receive Date: 20100527
  Receipt Date: 20100517
  Transmission Date: 20101027
  Serious: Yes (Other)
  Sender: FDA-Public Use
  Company Number: PHHY2010FR32668

PATIENT
  Sex: Female

DRUGS (3)
  1. TEGRETOL [Suspect]
     Indication: EPILEPSY
     Dosage: 8 MG, DIALY, DURING THE THREE TRIMESTERES OF PREGNANCY
     Route: 064
     Dates: start: 19980101
  2. KEPPRA [Suspect]
     Dosage: 3000 MG, DAILY, DURING THE THREE TRIMESTERS OF PREGNANCY
     Route: 064
  3. FOLIC ACID [Concomitant]
     Dosage: UNK, DURING THE THREE TRIMESTERS OF PREGNANCY
     Route: 064

REACTIONS (2)
  - DRUG EXPOSURE DURING PREGNANCY [None]
  - FOETAL GROWTH RETARDATION [None]
